FAERS Safety Report 5421679-1 (Version None)
Quarter: 2007Q3

REPORT INFORMATION
  Report Type: 
  Country: None (occurrence: None)
  Receive Date: 20070821
  Receipt Date: 20070809
  Transmission Date: 20080115
  Serious: Yes (Hospitalization, Other)
  Sender: FDA-Public Use
  Company Number: BE-PFIZER INC-2007066377

PATIENT
  Age: 54 Year
  Sex: Female

DRUGS (1)
  1. ANTITHYMOCYTE IMMUNOGLOBULIN SOLUTION, STERILE [Suspect]
     Route: 042

REACTIONS (1)
  - DEMYELINATING POLYNEUROPATHY [None]
